FAERS Safety Report 7210689-X (Version None)
Quarter: 2011Q1

REPORT INFORMATION
  Report Type: 
  Country: None (occurrence: None)
  Receive Date: 20110105
  Receipt Date: 20110103
  Transmission Date: 20110831
  Serious: No
  Sender: FDA-Public Use
  Company Number: US-PFIZER INC-2009286689

PATIENT
  Sex: Female
  Weight: 54 kg

DRUGS (3)
  1. CHANTIX [Suspect]
     Dosage: UNK
     Route: 048
     Dates: start: 20101201
  2. CHANTIX [Suspect]
     Dosage: 0.5 MG, 1X/DAY
     Route: 048
     Dates: start: 20090801, end: 20091018
  3. MULTIVITAMIN [Concomitant]
     Dosage: UNK

REACTIONS (5)
  - PRURITUS GENERALISED [None]
  - MALAISE [None]
  - NIGHTMARE [None]
  - TOBACCO USER [None]
  - HEADACHE [None]
